FAERS Safety Report 21907623 (Version 1)
Quarter: 2023Q1

REPORT INFORMATION
  Report Type: Spontaneous
  Country: US (occurrence: US)
  Receive Date: 20230125
  Receipt Date: 20230125
  Transmission Date: 20230417
  Serious: No
  Sender: FDA-Public Use
  Company Number: US-ABBVIE-4250105

PATIENT
  Age: 30 Year
  Sex: Male

DRUGS (1)
  1. MAVYRET [Suspect]
     Active Substance: GLECAPREVIR\PIBRENTASVIR
     Indication: Chronic hepatitis C
     Dosage: LAST ADMIN DATE -2022
     Route: 048

REACTIONS (3)
  - Jarisch-Herxheimer reaction [Unknown]
  - Skin discolouration [Unknown]
  - Alopecia [Unknown]

NARRATIVE: CASE EVENT DATE: 20221125
